FAERS Safety Report 6524793-2 (Version None)
Quarter: 2010Q1

REPORT INFORMATION
  Report Type: 
  Country: None (occurrence: None)
  Receive Date: 20100104
  Receipt Date: 20091221
  Transmission Date: 20100710
  Serious: Yes (Hospitalization)
  Sender: FDA-Public Use
  Company Number: US-ELI_LILLY_AND_COMPANY-US200910004384

PATIENT
  Sex: Female
  Weight: 90.703 kg

DRUGS (7)
  1. SYMBYAX [Suspect]
     Indication: BIPOLAR I DISORDER
     Dosage: 1 D/F, DAILY (1/D)
     Dates: start: 20090224, end: 20090318
  2. SYMBYAX [Suspect]
     Dosage: 1 D/F, DAILY (1/D)
     Dates: start: 20090101
  3. SYMBYAX [Suspect]
     Dosage: 1 D/F, DAILY (1/D)
     Dates: start: 20090101
  4. SYMBYAX [Suspect]
     Dosage: 1 D/F, DAILY (1/D)
     Dates: start: 20090319, end: 20091110
  5. KLONOPIN [Concomitant]
     Indication: GENERALISED ANXIETY DISORDER
     Dosage: 0.5 MG, EACH EVENING
  6. TRAZODONE HCL [Concomitant]
  7. TOPAMAX [Concomitant]
     Indication: AFFECTIVE DISORDER
     Dosage: 150 MG, DAILY (1/D)
     Dates: start: 20090101

REACTIONS (11)
  - BLOOD CHOLESTEROL INCREASED [None]
  - BLOOD GLUCOSE INCREASED [None]
  - BLOOD TRIGLYCERIDES INCREASED [None]
  - DRUG INEFFECTIVE [None]
  - EXERCISE LACK OF [None]
  - INCREASED APPETITE [None]
  - LOW DENSITY LIPOPROTEIN INCREASED [None]
  - PSYCHIATRIC SYMPTOM [None]
  - SOMNOLENCE [None]
  - TOTAL CHOLESTEROL/HDL RATIO INCREASED [None]
  - WEIGHT INCREASED [None]
